FAERS Safety Report 15050336 (Version 2)
Quarter: 2018Q3

REPORT INFORMATION
  Report Type: Report from Study
  Country: US (occurrence: US)
  Receive Date: 20180622
  Receipt Date: 20180702
  Transmission Date: 20181010
  Serious: Yes (Hospitalization)
  Sender: FDA-Public Use
  Company Number: US-SANOFI-AVENTIS-2013SA031975

PATIENT
  Age: 45 Year
  Sex: Female

DRUGS (4)
  1. TERIFLUNOMIDE [Suspect]
     Active Substance: TERIFLUNOMIDE
     Indication: MULTIPLE SCLEROSIS
     Dosage: 14 MG, QD
     Route: 048
     Dates: start: 20130131, end: 20180308
  2. TERIFLUNOMIDE [Suspect]
     Active Substance: TERIFLUNOMIDE
     Dosage: 14 MG, QD
     Route: 048
  3. TERIFLUNOMIDE [Suspect]
     Active Substance: TERIFLUNOMIDE
     Dosage: 7 MG, QD
     Route: 048
  4. TERIFLUNOMIDE [Suspect]
     Active Substance: TERIFLUNOMIDE
     Dosage: 7 MG, QD
     Route: 048

REACTIONS (13)
  - Bladder disorder [Recovered/Resolved]
  - Headache [Recovered/Resolved]
  - Hepatic enzyme increased [Unknown]
  - Thermal burn [Recovered/Resolved]
  - Cough [Recovered/Resolved]
  - Multiple sclerosis relapse [Recovered/Resolved]
  - Liver injury [Recovered/Resolved]
  - Herpes zoster [Recovered/Resolved]
  - Hepatic steatosis [Not Recovered/Not Resolved]
  - Increased viscosity of upper respiratory secretion [Recovered/Resolved]
  - Infectious disease carrier [Recovered/Resolved]
  - Pain [Recovered/Resolved]
  - Pyrexia [Recovered/Resolved]

NARRATIVE: CASE EVENT DATE: 201408
